FAERS Safety Report 10660781 (Version 2)
Quarter: 2014Q4

REPORT INFORMATION
  Report Type: Report from Study
  Country: US (occurrence: US)
  Receive Date: 20141217
  Receipt Date: 20141226
  Transmission Date: 20150529
  Serious: Yes (Hospitalization, Other)
  Sender: FDA-Public Use
  Company Number: US-BRISTOL-MYERS SQUIBB COMPANY-BMS-2014-000091

PATIENT
  Age: 62 Year
  Sex: Female
  Weight: 104 kg

DRUGS (20)
  1. ZETIA [Concomitant]
     Active Substance: EZETIMIBE
  2. VITAMIN C [Concomitant]
     Active Substance: ASCORBIC ACID
  3. EMLA [Concomitant]
     Active Substance: LIDOCAINE\PRILOCAINE
  4. ZYRTEC [Concomitant]
     Active Substance: CETIRIZINE HYDROCHLORIDE
  5. AMLODIPINE [Concomitant]
     Active Substance: AMLODIPINE BESYLATE
  6. COMPAZINE [Concomitant]
     Active Substance: PROCHLORPERAZINE MALEATE
  7. ASPIRIN                            /00002701/ [Concomitant]
     Active Substance: ASPIRIN
  8. ONDANSETRON [Concomitant]
     Active Substance: ONDANSETRON
  9. ALDACTONE [Concomitant]
     Active Substance: SPIRONOLACTONE
  10. IPILIMUMAB [Suspect]
     Active Substance: IPILIMUMAB
     Indication: METASTATIC MALIGNANT MELANOMA
     Dosage: 1 MG/KG, UNK
     Route: 042
     Dates: start: 20140721, end: 20140902
  11. PROTONIX [Concomitant]
     Active Substance: PANTOPRAZOLE SODIUM
  12. SYNTHROID [Concomitant]
     Active Substance: LEVOTHYROXINE SODIUM
  13. ATENOLOL. [Concomitant]
     Active Substance: ATENOLOL
  14. BENADRYL [Concomitant]
     Active Substance: DIPHENHYDRAMINE HYDROCHLORIDE
  15. CALCIUM 600+D                      /00944201/ [Concomitant]
  16. MEDROL [Concomitant]
     Active Substance: METHYLPREDNISOLONE
  17. NIVOLUMAB [Suspect]
     Active Substance: NIVOLUMAB
     Indication: METASTATIC MALIGNANT MELANOMA
     Dosage: 1 MG/KG, TOTAL
     Route: 042
     Dates: start: 20140721
  18. ATIVAN [Concomitant]
     Active Substance: LORAZEPAM
     Indication: NAUSEA
  19. DOXAZOSIN [Concomitant]
     Active Substance: DOXAZOSIN\DOXAZOSIN MESYLATE
  20. ZYRTEC-D [Concomitant]
     Active Substance: CETIRIZINE HYDROCHLORIDE\PSEUDOEPHEDRINE HYDROCHLORIDE

REACTIONS (1)
  - Adrenal insufficiency [Recovered/Resolved]

NARRATIVE: CASE EVENT DATE: 20141210
